FAERS Safety Report 9455534 (Version 1)
Quarter: 2013Q3

REPORT INFORMATION
  Report Type: Spontaneous
  Country: US (occurrence: US)
  Receive Date: 20130813
  Receipt Date: 20130813
  Transmission Date: 20140515
  Serious: No
  Sender: FDA-Public Use
  Company Number: US-PFIZER INC-2013233037

PATIENT
  Age: 48 Year
  Sex: Female
  Weight: 55.33 kg

DRUGS (3)
  1. LEVOXYL [Suspect]
     Indication: HYPOTHYROIDISM
     Dosage: 50 UG, 1X/DAY
     Route: 048
     Dates: start: 201110, end: 201111
  2. LEVOXYL [Suspect]
     Dosage: 25 UG, 1X/DAY
     Route: 048
     Dates: start: 201111, end: 201112
  3. LEVOXYL [Suspect]
     Dosage: 50 UG, 1X/DAY
     Route: 048
     Dates: start: 201112

REACTIONS (4)
  - Palpitations [Recovered/Resolved]
  - Insomnia [Recovered/Resolved]
  - Drug ineffective [Unknown]
  - Drug intolerance [Unknown]
